FAERS Safety Report 6883868-9 (Version None)
Quarter: 2010Q3

REPORT INFORMATION
  Report Type: 
  Country: None (occurrence: None)
  Receive Date: 20100708
  Receipt Date: 20100225
  Transmission Date: 20110219
  Serious: Yes (Other)
  Sender: FDA-Public Use
  Company Number: 2010023104

PATIENT
  Age: 66 Year
  Sex: Male
  Weight: 99.8 kg

DRUGS (4)
  1. CHANTIX [Suspect]
     Indication: SMOKING CESSATION THERAPY
     Dosage: 0.5 MG, 1X/DAY, ORAL
     Route: 048
     Dates: start: 20100101, end: 20100201
  2. ZOCOR [Concomitant]
  3. TOPROL-XL [Concomitant]
  4. ASPIRIN [Concomitant]

REACTIONS (5)
  - DYSPEPSIA [None]
  - HYPERSENSITIVITY [None]
  - LETHARGY [None]
  - PARANASAL SINUS HYPERSECRETION [None]
  - RASH [None]
